FAERS Safety Report 6485127-5 (Version None)
Quarter: 2009Q4

REPORT INFORMATION
  Report Type: 
  Country: None (occurrence: None)
  Receive Date: 20091204
  Receipt Date: 20091121
  Transmission Date: 20100525
  Serious: Yes (Other)
  Sender: FDA-Public Use
  Company Number: AXC-2009-000084

PATIENT
  Sex: Female

DRUGS (2)
  1. MESALAMINE [Suspect]
     Indication: COLITIS ULCERATIVE
     Dosage: 2000 MG, QD, ORAL
     Route: 048
  2. PREDNISOLONE [Concomitant]

REACTIONS (7)
  - DRUG HYPERSENSITIVITY [None]
  - ELECTROCARDIOGRAM ABNORMAL [None]
  - ELECTROCARDIOGRAM ST-T CHANGE [None]
  - LYMPHOCYTE STIMULATION TEST POSITIVE [None]
  - MUSCLE ATROPHY [None]
  - MYOPATHY TOXIC [None]
  - MYOSITIS [None]
